FAERS Safety Report 14647313 (Version 2)
Quarter: 2018Q2

REPORT INFORMATION
  Report Type: Spontaneous
  Country: JP (occurrence: JP)
  Receive Date: 20180316
  Receipt Date: 20180422
  Transmission Date: 20180711
  Serious: Yes (Other)
  Sender: FDA-Public Use
  Company Number: JP-APOTEX-2018AP008405

PATIENT
  Age: 41 Year
  Sex: Male

DRUGS (2)
  1. PAXIL CR [Suspect]
     Active Substance: PAROXETINE HYDROCHLORIDE
     Dosage: 50 MG, 1D
     Route: 048
     Dates: start: 20180214
  2. PAXIL CR [Suspect]
     Active Substance: PAROXETINE HYDROCHLORIDE
     Dosage: UNK
     Route: 048
     Dates: end: 20180213

REACTIONS (8)
  - Initial insomnia [Unknown]
  - Anxiety [Unknown]
  - Pyrexia [Unknown]
  - Panic reaction [Unknown]
  - Restlessness [Unknown]
  - Confusional state [Unknown]
  - Serotonin syndrome [Unknown]
  - Agitation [Unknown]

NARRATIVE: CASE EVENT DATE: 201802
